FAERS Safety Report 21089084 (Version 2)
Quarter: 2022Q3

REPORT INFORMATION
  Report Type: Spontaneous
  Country: CN (occurrence: CN)
  Receive Date: 20220715
  Receipt Date: 20220930
  Transmission Date: 20221026
  Serious: Yes (Hospitalization, Other)
  Sender: FDA-Public Use
  Company Number: CN-MLMSERVICE-20220704-3652475-1

PATIENT
  Age: 17 Year
  Sex: Female

DRUGS (20)
  1. ZOLPIDEM TARTRATE [Suspect]
     Active Substance: ZOLPIDEM TARTRATE
     Indication: Insomnia
     Dosage: 5 MG, HS
     Dates: start: 201605
  2. ZOLPIDEM TARTRATE [Suspect]
     Active Substance: ZOLPIDEM TARTRATE
     Dosage: INCREASING THE DOSAGE OVER TIME
     Dates: start: 201607
  3. ZOLPIDEM TARTRATE [Suspect]
     Active Substance: ZOLPIDEM TARTRATE
     Dosage: 30 MG, QD
     Dates: start: 201607
  4. ZOLPIDEM TARTRATE [Suspect]
     Active Substance: ZOLPIDEM TARTRATE
     Dosage: 40 MG, QD
     Dates: start: 201607
  5. ZOLPIDEM TARTRATE [Suspect]
     Active Substance: ZOLPIDEM TARTRATE
     Dosage: HIGHER DOSES TAKEN ON EMPTY STOMACH
     Dates: start: 201607
  6. ZOLPIDEM TARTRATE [Suspect]
     Active Substance: ZOLPIDEM TARTRATE
     Dosage: 400 MG, QD
     Dates: start: 2019
  7. ZOLPIDEM TARTRATE [Suspect]
     Active Substance: ZOLPIDEM TARTRATE
     Dosage: UNABLE TO GET A SUFFICIENT SUPPLY FROM HOSPITAL PHARMACIES, THE PATIENT BOUGHT THE MEDICATION AT HIG
     Dates: start: 2019
  8. ZOLPIDEM TARTRATE [Suspect]
     Active Substance: ZOLPIDEM TARTRATE
     Dosage: 30 MG, QD (PROGRESSIVELY REDUCED FROM 30MG/DAY TO ITS DISCONTINUATION)
     Dates: start: 201908
  9. ZOLPIDEM TARTRATE [Suspect]
     Active Substance: ZOLPIDEM TARTRATE
     Dosage: 200 MG, QD
     Dates: start: 201909
  10. ZOLPIDEM TARTRATE [Suspect]
     Active Substance: ZOLPIDEM TARTRATE
     Dosage: 800 MG, QD
     Dates: start: 202006
  11. ZOLPIDEM TARTRATE [Suspect]
     Active Substance: ZOLPIDEM TARTRATE
     Dosage: 1400 MG, QD
     Dates: start: 202011
  12. ZOPICLONE [Concomitant]
     Active Substance: ZOPICLONE
     Indication: Euphoric mood
     Dosage: SLEEPING PILLS
     Dates: start: 2016
  13. DIAZEPAM [Concomitant]
     Active Substance: DIAZEPAM
     Indication: Euphoric mood
     Dosage: SLEEPING PILLS
     Dates: start: 2016
  14. DIAZEPAM [Concomitant]
     Active Substance: DIAZEPAM
     Indication: Withdrawal syndrome
     Dosage: UNK
     Dates: start: 201908
  15. DIAZEPAM [Concomitant]
     Active Substance: DIAZEPAM
     Dosage: 10 MG, QID
  16. DIAZEPAM [Concomitant]
     Active Substance: DIAZEPAM
     Dosage: 20 MG, THREE TO FOUR TIMES PER DAY
     Dates: start: 202006
  17. DIAZEPAM [Concomitant]
     Active Substance: DIAZEPAM
     Dosage: 5 MG, HS
     Dates: start: 202011
  18. ALPRAZOLAM [Concomitant]
     Active Substance: ALPRAZOLAM
     Indication: Euphoric mood
     Dosage: SLEEPING PILLS
     Dates: start: 2016
  19. ALPRAZOLAM [Concomitant]
     Active Substance: ALPRAZOLAM
     Indication: Overdose
     Dosage: 4.8 MG
     Dates: start: 202011
  20. LORAZEPAM [Concomitant]
     Active Substance: LORAZEPAM
     Indication: Euphoric mood
     Dosage: SLEEPING PILLS
     Dates: start: 2016

REACTIONS (20)
  - Euphoric mood [Recovered/Resolved]
  - Psychomotor hyperactivity [Recovered/Resolved]
  - Logorrhoea [Recovered/Resolved]
  - Impulsive behaviour [Recovered/Resolved]
  - Grandiosity [Recovered/Resolved]
  - Circadian rhythm sleep disorder [Recovered/Resolved]
  - Memory impairment [Recovered/Resolved]
  - Self-medication [Recovered/Resolved]
  - Drug dependence [Recovered/Resolved]
  - Withdrawal syndrome [Recovered/Resolved]
  - Tremor [Recovered/Resolved]
  - Hyperhidrosis [Recovered/Resolved]
  - Palpitations [Recovered/Resolved]
  - Nausea [Recovered/Resolved]
  - Dysphoria [Recovered/Resolved]
  - Depressed mood [Recovered/Resolved]
  - Drug abuse [Recovered/Resolved]
  - Intentional overdose [Recovered/Resolved]
  - Suicide attempt [Recovered/Resolved]
  - Suicidal ideation [Recovered/Resolved]

NARRATIVE: CASE EVENT DATE: 20160701
